FAERS Safety Report 9529862 (Version 2)
Quarter: 2013Q3

REPORT INFORMATION
  Report Type: Spontaneous
  Country: US (occurrence: US)
  Receive Date: 20130917
  Receipt Date: 20130924
  Transmission Date: 20140515
  Serious: No
  Sender: FDA-Public Use
  Company Number: US-PFIZER INC-2013264748

PATIENT
  Age: 75 Year
  Sex: Female
  Weight: 63.49 kg

DRUGS (3)
  1. ATORVASTATIN CALCIUM [Suspect]
     Indication: BLOOD CHOLESTEROL INCREASED
     Dosage: 20 MG, UNK
     Dates: start: 201304, end: 201305
  2. PRAVASTATIN SODIUM [Suspect]
     Indication: BLOOD CHOLESTEROL INCREASED
     Dosage: 40 MG, UNK
     Dates: start: 201306
  3. DILTIAZEM [Concomitant]
     Indication: HYPERTENSION
     Dosage: 120 MG, 1X/DAY

REACTIONS (2)
  - Spinal pain [Unknown]
  - Drug ineffective [Unknown]
